FAERS Safety Report 11130193 (Version 2)
Quarter: 2015Q3

REPORT INFORMATION
  Report Type: Spontaneous
  Country: BR (occurrence: BR)
  Receive Date: 20150521
  Receipt Date: 20150923
  Transmission Date: 20151125
  Serious: Yes (Other)
  Sender: FDA-Public Use
  Company Number: BR-UCBSA-2015016241

PATIENT
  Sex: Female

DRUGS (3)
  1. FLUCONAZOLE. [Concomitant]
     Active Substance: FLUCONAZOLE
     Indication: CANDIDA INFECTION
     Dosage: UNK
  2. GYNAZOLE-1 [Concomitant]
     Active Substance: BUTOCONAZOLE NITRATE
     Indication: CANDIDA INFECTION
     Dosage: UNK
     Route: 067
  3. CIMZIA [Suspect]
     Active Substance: CERTOLIZUMAB PEGOL
     Indication: PRODUCT USED FOR UNKNOWN INDICATION
     Dosage: 200 MG, UNK
     Route: 058

REACTIONS (4)
  - Product quality issue [Unknown]
  - Influenza [Unknown]
  - Candida infection [Unknown]
  - Cough [Unknown]

NARRATIVE: CASE EVENT DATE: 201507
